FAERS Safety Report 17650708 (Version 6)
Quarter: 2020Q3

REPORT INFORMATION
  Report Type: Report from Study
  Country: CA (occurrence: CA)
  Receive Date: 20200409
  Receipt Date: 20200804
  Transmission Date: 20201102
  Serious: Yes (Other)
  Sender: FDA-Public Use
  Company Number: CA-JNJFOC-20200400391

PATIENT
  Age: 58 Year
  Sex: Female
  Weight: 63.5 kg

DRUGS (3)
  1. STELARA [Suspect]
     Active Substance: USTEKINUMAB
     Indication: COLITIS ULCERATIVE
     Route: 058
  2. STELARA [Suspect]
     Active Substance: USTEKINUMAB
     Route: 042
  3. STELARA [Suspect]
     Active Substance: USTEKINUMAB
     Route: 058
     Dates: start: 20200207

REACTIONS (12)
  - Fatigue [Unknown]
  - Asthenia [Recovered/Resolved]
  - Dizziness [Unknown]
  - Pain [Unknown]
  - Nasopharyngitis [Recovered/Resolved]
  - Gastrooesophageal reflux disease [Unknown]
  - Off label use [Unknown]
  - Intestinal ulcer [Not Recovered/Not Resolved]
  - Diarrhoea [Recovered/Resolved]
  - Headache [Unknown]
  - Haematochezia [Recovered/Resolved]
  - Product use issue [Unknown]

NARRATIVE: CASE EVENT DATE: 2020
